FAERS Safety Report 5150875-6 (Version None)
Quarter: 2006Q4

REPORT INFORMATION
  Report Type: 
  Country: None (occurrence: None)
  Receive Date: 20061108
  Receipt Date: 20061025
  Transmission Date: 20070319
  Serious: Yes (Death, Other)
  Sender: FDA-Public Use
  Company Number: 2006SP001894

PATIENT
  Age: 51 Year
  Sex: Female
  Weight: 51 kg

DRUGS (11)
  1. TEMODAL [Suspect]
     Indication: OLIGODENDROGLIOMA
     Dosage: 220 MG; PO
     Route: 048
     Dates: start: 20030526, end: 20040615
  2. BELUSTINE (LOMUSTINE) [Suspect]
     Indication: OLIGODENDROGLIOMA
     Dosage: 160 MG; PO
     Route: 048
     Dates: start: 20030526, end: 20040201
  3. VINCRISTINE [Suspect]
     Indication: OLIGODENDROGLIOMA
     Dosage: 2 MG; IV
     Route: 042
     Dates: start: 20030623, end: 20031001
  4. ANAUSIN METOCLOPRAMIDE [Concomitant]
  5. MEDROL [Concomitant]
  6. KYTRIL [Concomitant]
  7. EPITOMAX [Concomitant]
  8. LAMICTAL [Concomitant]
  9. LEVOTHYROXINE SODIUM [Concomitant]
  10. ARANESP [Concomitant]
  11. RADIOTHERAPY [Concomitant]

REACTIONS (16)
  - ACUTE LEUKAEMIA [None]
  - ANAEMIA [None]
  - ASTHENIA [None]
  - BLOOD LACTATE DEHYDROGENASE INCREASED [None]
  - CONFUSIONAL STATE [None]
  - FUNGAL INFECTION [None]
  - GENERAL PHYSICAL CONDITION ABNORMAL [None]
  - HYPERTHERMIA [None]
  - MYELODYSPLASTIC SYNDROME [None]
  - NASOPHARYNGEAL DISORDER [None]
  - ORAL INFECTION [None]
  - PANCYTOPENIA [None]
  - PURULENCE [None]
  - RESPIRATORY DISTRESS [None]
  - SOMNOLENCE [None]
  - THROMBOCYTOPENIA [None]
